FAERS Safety Report 5000221-3 (Version None)
Quarter: 2006Q3

REPORT INFORMATION
  Report Type: 
  Country: None (occurrence: None)
  Receive Date: 20060509
  Receipt Date: 20060426
  Transmission Date: 20061208
  Serious: Yes (Other)
  Sender: FDA-Public Use
  Company Number: 2006051538

PATIENT
  Age: 46 Year
  Sex: Male
  Weight: 82.4 kg

DRUGS (4)
  1. SUTENT [Suspect]
     Indication: COLON CANCER METASTATIC
     Dosage: 50 MG (50 MG, DAILY-INTERVAL:  CYCLIC), ORAL
     Route: 048
     Dates: start: 20060225
  2. IRINOTECAN HCL [Suspect]
     Indication: COLON CANCER METASTATIC
     Dosage: (360 MG, 2 WKLY - INTERVAL: EVERY 2 WEEKS), INTRAVENOUS
     Route: 042
     Dates: start: 20060223
  3. FLUOROURACIL [Suspect]
     Indication: COLON CANCER METASTATIC
     Dosage: (800 MG, 2 WKLY - INTERVAL: EVERY 2 WEEKS), INTRAVENOUS
     Route: 042
     Dates: start: 20060223
  4. LEUCOVORIN CALCIUM [Suspect]
     Indication: COLON CANCER METASTATIC
     Dosage: (400 MG, 2 WKLY - INTERVAL: EVERY 2 WEEKS), INTRAVENOUS
     Route: 042
     Dates: start: 20060223

REACTIONS (3)
  - DRUG INTERACTION [None]
  - NEUTROPENIA [None]
  - WHITE BLOOD CELL COUNT DECREASED [None]
